FAERS Safety Report 6539858-9 (Version None)
Quarter: 2010Q1

REPORT INFORMATION
  Report Type: 
  Country: None (occurrence: None)
  Receive Date: 20100115
  Receipt Date: 20100104
  Transmission Date: 20100710
  Serious: Yes (Hospitalization)
  Sender: FDA-Public Use
  Company Number: GB-WATSON-2010-00096

PATIENT
  Age: 9 Year
  Sex: Male

DRUGS (4)
  1. LAMOTRIGINE [Suspect]
     Indication: CONVULSION
     Dosage: 2 MG/KG, DAILY
  2. CLOBAZAM [Suspect]
     Indication: CONVULSION
     Dosage: 1.5 MG/KG, DAILY
  3. ETHOSUXIMIDE [Suspect]
     Indication: CONVULSION
     Dosage: 33 MG/KG, DAILY
  4. VALPROIC ACID [Suspect]
     Indication: CONVULSION
     Dosage: 33 MG/KG, DAILY

REACTIONS (2)
  - BLISTER [None]
  - COMA [None]
